FAERS Safety Report 8844109 (Version 2)
Quarter: 2012Q4

REPORT INFORMATION
  Report Type: Report from Study
  Country: JP (occurrence: JP)
  Receive Date: 20121016
  Receipt Date: 20121128
  Transmission Date: 20130627
  Serious: Yes (Hospitalization, Other)
  Sender: FDA-Public Use
  Company Number: JP-VERTEX PHARMACEUTICAL INC.-2012-022769

PATIENT
  Age: 45 Year
  Sex: Female

DRUGS (8)
  1. VX-950 (TELAPREVIR) [Suspect]
     Indication: CHRONIC HEPATITIS C
     Dosage: 1500 mg, qd
     Route: 048
     Dates: start: 20120808, end: 20121018
  2. REBETOL [Suspect]
     Indication: CHRONIC HEPATITIS C
     Dosage: 600 mg, qd
     Route: 048
     Dates: start: 20120808, end: 20120905
  3. REBETOL [Suspect]
     Dosage: 400 mg, qd
     Route: 048
     Dates: start: 20120906, end: 20120912
  4. REBETOL [Suspect]
     Dosage: 200 mg, qd
     Route: 048
     Dates: start: 20120913, end: 20121001
  5. PEGINTERFERON ALFA-2B [Suspect]
     Indication: CHRONIC HEPATITIS C
     Dosage: 1.5 ?g/kg, UNK
     Route: 058
     Dates: start: 20120808, end: 20120905
  6. PEGINTERFERON ALFA-2B [Suspect]
     Dosage: 0.7 ?g/kg, UNK
     Route: 058
     Dates: start: 20120906, end: 20120912
  7. PEGINTERFERON ALFA-2B [Suspect]
     Dosage: 1.1 ?g/kg, UNK
     Route: 058
     Dates: start: 20120913, end: 20120919
  8. PEGINTERFERON ALFA-2B [Suspect]
     Dosage: 1.5 ?g/kg, UNK
     Route: 058
     Dates: start: 20120920, end: 20121018

REACTIONS (2)
  - Delusion [Not Recovered/Not Resolved]
  - Anaemia [Recovered/Resolved]
